FAERS Safety Report 7487330-4 (Version None)
Quarter: 2011Q2

REPORT INFORMATION
  Report Type: 
  Country: None (occurrence: None)
  Receive Date: 20110510
  Receipt Date: 20110429
  Transmission Date: 20111010
  Serious: Yes (Life-Threatening)
  Sender: FDA-Public Use
  Company Number: 2011MA004958

PATIENT
  Age: 80 Year
  Sex: Male

DRUGS (6)
  1. RITUXIMAB [Concomitant]
  2. ACYCLOVIR [Concomitant]
  3. DOMPERIDONE [Concomitant]
  4. FLUDARABINE PHOSPHATE [Suspect]
     Indication: NON-HODGKIN'S LYMPHOMA
     Dosage: 50 MG;QD;SUBDERMAL
     Route: 059
     Dates: start: 20100401, end: 20101001
  5. CYCLOPHOSPHAMIDE [Concomitant]
  6. COTRIM [Concomitant]

REACTIONS (3)
  - WHITE BLOOD CELL COUNT DECREASED [None]
  - NEUTROPHIL COUNT DECREASED [None]
  - AGRANULOCYTOSIS [None]
